FAERS Safety Report 9961380 (Version 1)
Quarter: 2014Q1

REPORT INFORMATION
  Report Type: Spontaneous
  Country: US (occurrence: US)
  Receive Date: 20140305
  Receipt Date: 20140305
  Transmission Date: 20141002
  Serious: Yes (Hospitalization)
  Sender: FDA-Public Use
  Company Number: US-ASTRAZENECA-2014SE13222

PATIENT
  Sex: Female

DRUGS (10)
  1. LISINOPRIL [Suspect]
     Route: 048
  2. TOPROL XL [Suspect]
     Route: 048
  3. HCTZ [Suspect]
     Route: 065
  4. AMLODIPINE [Suspect]
     Route: 065
  5. CIPRO [Suspect]
     Route: 065
  6. DIOVAN [Suspect]
     Route: 065
  7. DIOVAN [Suspect]
     Route: 065
  8. NORVASC [Concomitant]
     Dosage: FOR 12 YEARS
  9. ASPIRIN [Concomitant]
  10. CHOLESTEROL PILL [Concomitant]

REACTIONS (6)
  - Dehydration [Unknown]
  - Renal failure [Unknown]
  - Abdominal pain upper [Unknown]
  - Clostridium difficile infection [Unknown]
  - Renal disorder [Unknown]
  - Drug effect decreased [Unknown]
